FAERS Safety Report 6860122-2 (Version None)
Quarter: 2010Q3

REPORT INFORMATION
  Report Type: 
  Country: None (occurrence: None)
  Receive Date: 20100720
  Receipt Date: 20100706
  Transmission Date: 20110219
  Serious: Yes (Hospitalization, Other)
  Sender: FDA-Public Use
  Company Number: US-ELI_LILLY_AND_COMPANY-US201001004682

PATIENT
  Sex: Male

DRUGS (12)
  1. FORTEO [Suspect]
     Indication: OSTEOPOROSIS
     Dosage: 20 UG, UNK
     Dates: start: 20091202, end: 20100114
  2. FORTEO [Suspect]
     Dosage: 20 UG, UNK
     Dates: end: 20100628
  3. OXYGEN [Concomitant]
  4. MUCINEX [Concomitant]
     Dosage: 600 MG, 2/D
  5. PREDNISONE [Concomitant]
     Dosage: 25 MG, DAILY (1/D)
  6. SYMBICORT [Concomitant]
     Dosage: UNK, 2/D
     Route: 055
  7. ALBUTEROL [Concomitant]
     Dosage: UNK, 4/D
     Route: 055
  8. IPRATROPIUM BROMIDE [Concomitant]
     Dosage: 2 %, UNK
     Route: 055
  9. CALTRATE [Concomitant]
  10. FISH OIL [Concomitant]
  11. CENTRUM SILVER [Concomitant]
  12. DARVOCET [Concomitant]
     Dosage: UNK, AS NEEDED

REACTIONS (6)
  - FALL [None]
  - HEART RATE IRREGULAR [None]
  - HOSPITALISATION [None]
  - LOSS OF CONSCIOUSNESS [None]
  - OXYGEN CONSUMPTION DECREASED [None]
  - STENT PLACEMENT [None]
